FAERS Safety Report 4863396-2 (Version None)
Quarter: 2005Q4

REPORT INFORMATION
  Report Type: 
  Country: None (occurrence: None)
  Receive Date: 20051222
  Receipt Date: 20041129
  Transmission Date: 20060501
  Serious: No
  Sender: FDA-Public Use
  Company Number: US-GLAXOSMITHKLINE-A0535402A

PATIENT
  Age: 54 Year
  Sex: Male

DRUGS (2)
  1. FLONASE [Suspect]
     Dosage: 2PUFF PER DAY
     Route: 045
     Dates: start: 20040101
  2. NO CONCURRENT MEDICATION [Concomitant]

REACTIONS (1)
  - EPISTAXIS [None]
